FAERS Safety Report 22169776 (Version 1)
Quarter: 2023Q2

REPORT INFORMATION
  Report Type: Spontaneous
  Country: IN (occurrence: IN)
  Receive Date: 20230404
  Receipt Date: 20230404
  Transmission Date: 20230722
  Serious: Yes (Hospitalization, Other)
  Sender: FDA-Public Use
  Company Number: IN-SA-SAC20230331001334

PATIENT
  Sex: Male

DRUGS (2)
  1. LANTUS [Suspect]
     Active Substance: INSULIN GLARGINE
     Dosage: UNK
  2. INSULIN HUMAN [Suspect]
     Active Substance: INSULIN HUMAN
     Dosage: UNK

REACTIONS (6)
  - Blood pressure increased [Unknown]
  - Blindness unilateral [Unknown]
  - Nerve injury [Unknown]
  - Diabetic neuropathy [Unknown]
  - Blood glucose increased [Unknown]
  - Diabetic retinopathy [Unknown]
